FAERS Safety Report 12547843 (Version 2)
Quarter: 2016Q3

REPORT INFORMATION
  Report Type: Spontaneous
  Country: KR (occurrence: KR)
  Receive Date: 20160712
  Receipt Date: 20160829
  Transmission Date: 20161109
  Serious: Yes (Other)
  Sender: FDA-Public Use
  Company Number: KR-JNJFOC-20160703694

PATIENT

DRUGS (2)
  1. SIRTURO [Suspect]
     Active Substance: BEDAQUILINE FUMARATE
     Indication: TUBERCULOSIS
     Route: 048
  2. DELAMANID [Suspect]
     Active Substance: DELAMANID
     Indication: TUBERCULOSIS
     Route: 065

REACTIONS (9)
  - Neuropathy peripheral [Unknown]
  - Musculoskeletal disorder [Unknown]
  - Treatment failure [Unknown]
  - Haematotoxicity [Unknown]
  - Tuberculosis [Unknown]
  - Fatigue [Unknown]
  - Mental disorder [Unknown]
  - Ototoxicity [Unknown]
  - Dermatitis allergic [Unknown]
